FAERS Safety Report 8991415 (Version 1)
Quarter: 2012Q4

REPORT INFORMATION
  Report Type: 
  Country: DK (occurrence: DK)
  Receive Date: 20121229
  Receipt Date: 20121229
  Transmission Date: 20130627
  Serious: Yes (Other)
  Sender: FDA-Public Use
  Company Number: DK-MERCK-1209DNK011847

PATIENT
  Age: 18 Year
  Sex: Female
  Weight: 42 kg

DRUGS (3)
  1. MIRTAZAPINE [Suspect]
     Indication: PRODUCT USED FOR UNKNOWN INDICATION
     Dosage: Dose: 45 mg in the evening. Reduced September 2012 to 30 mg daily
     Route: 048
     Dates: start: 2011
  2. SERTRALINE HYDROCHLORIDE [Concomitant]
     Indication: OBSESSIVE-COMPULSIVE DISORDER
     Dosage: 200 mg, Once To be taken in the morning by the patient
     Route: 048
     Dates: start: 2009
  3. RISPERIDONE [Interacting]
     Indication: MENTAL DISORDER
     Route: 048
     Dates: start: 201112

REACTIONS (7)
  - Arrhythmia [Not Recovered/Not Resolved]
  - Hypotension [Not Recovered/Not Resolved]
  - Syncope [Not Recovered/Not Resolved]
  - Heart rate decreased [Not Recovered/Not Resolved]
  - Speech disorder [Not Recovered/Not Resolved]
  - Swollen tongue [Not Recovered/Not Resolved]
  - Drug interaction [Unknown]
